FAERS Safety Report 9825873 (Version 1)
Quarter: 2014Q1

REPORT INFORMATION
  Report Type: Spontaneous
  Country: US (occurrence: US)
  Receive Date: 20140117
  Receipt Date: 20140117
  Transmission Date: 20141002
  Serious: Yes (Other)
  Sender: FDA-Public Use
  Company Number: US-TEVA-456192USA

PATIENT
  Sex: Female
  Weight: 86.26 kg

DRUGS (4)
  1. PARAGARD 380A [Suspect]
     Indication: CONTRACEPTION
     Route: 015
     Dates: start: 20131112, end: 20131220
  2. PARAGARD 380A [Suspect]
     Route: 015
     Dates: start: 20131220, end: 20140113
  3. IRON [Concomitant]
     Indication: MINERAL SUPPLEMENTATION
  4. MULTIVITAMIN [Concomitant]
     Indication: VITAMIN SUPPLEMENTATION

REACTIONS (1)
  - Device dislocation [Recovered/Resolved]
